FAERS Safety Report 19442922 (Version 3)
Quarter: 2021Q3

REPORT INFORMATION
  Report Type: Spontaneous
  Country: GB (occurrence: GB)
  Receive Date: 20210621
  Receipt Date: 20210827
  Transmission Date: 20211014
  Serious: Yes (Death, Hospitalization)
  Sender: FDA-Public Use
  Company Number: GB-TEVA-2021-GB-1923673

PATIENT
  Age: 88 Year
  Sex: Female

DRUGS (5)
  1. EPADERM [Concomitant]
     Active Substance: MINERAL OIL\PETROLATUM\WAX, EMULSIFYING
     Dosage: PRN
  2. ALENDRONIC ACID [Concomitant]
     Active Substance: ALENDRONIC ACID
     Dosage: 70 MG
  3. CARBOMER [Concomitant]
     Active Substance: CARBOMER
     Dosage: 0.2%
  4. PREDNISOLONE. [Suspect]
     Active Substance: PREDNISOLONE
     Indication: MYALGIA
     Dosage: 15 MG IN SEP?2020, DOWN TO 7MG BY FEB?2021; ;
     Route: 048
     Dates: start: 202009
  5. OMEPRAZOLE. [Concomitant]
     Active Substance: OMEPRAZOLE
     Dosage: 20 MG

REACTIONS (6)
  - Agitation [Fatal]
  - General physical health deterioration [Fatal]
  - Confusional state [Fatal]
  - Memory impairment [Fatal]
  - Conversion disorder [Fatal]
  - Head discomfort [Fatal]

NARRATIVE: CASE EVENT DATE: 20210302
